FAERS Safety Report 21658236 (Version 2)
Quarter: 2022Q4

REPORT INFORMATION
  Report Type: Spontaneous
  Country: FR (occurrence: FR)
  Receive Date: 20221129
  Receipt Date: 20221208
  Transmission Date: 20230113
  Serious: Yes (Other)
  Sender: FDA-Public Use
  Company Number: FR-PFIZER INC-PV202200111291

PATIENT
  Age: 53 Year
  Sex: Female
  Weight: 85 kg

DRUGS (14)
  1. IBRANCE [Suspect]
     Active Substance: PALBOCICLIB
     Indication: Breast cancer metastatic
     Dosage: 125 MG, DAILY, 3 WEEKS OUT OF 4
     Route: 048
     Dates: start: 20180801, end: 20221116
  2. FEMARA [Concomitant]
     Active Substance: LETROZOLE
     Indication: Breast cancer metastatic
     Dosage: 2.5 MG, DAILY
     Route: 048
     Dates: start: 20180801
  3. LEUPROLIDE ACETATE [Concomitant]
     Active Substance: LEUPROLIDE ACETATE
     Indication: Breast cancer metastatic
     Dosage: 11.25 MG, EVERY 3 MONTHS
     Route: 030
     Dates: start: 20180801
  4. XGEVA [Concomitant]
     Active Substance: DENOSUMAB
     Indication: Breast cancer metastatic
     Dosage: 120 MG, EVERY 3 MONTHS
     Route: 058
     Dates: start: 20180801
  5. XGEVA [Concomitant]
     Active Substance: DENOSUMAB
     Indication: Metastases to bone
  6. CALCIUM [Concomitant]
     Active Substance: CALCIUM
     Indication: Breast cancer metastatic
     Dosage: 500 MG, DAILY
     Route: 048
     Dates: start: 20180801
  7. CALCIUM [Concomitant]
     Active Substance: CALCIUM
     Indication: Metastases to bone
  8. CHOLECALCIFEROL [Concomitant]
     Active Substance: CHOLECALCIFEROL
     Indication: Breast cancer metastatic
     Dosage: 100000 UNK (NO UNITS REPORTED), EVERY 3 MONTHS
     Route: 048
     Dates: start: 20180801
  9. CHOLECALCIFEROL [Concomitant]
     Active Substance: CHOLECALCIFEROL
     Indication: Metastases to bone
  10. OMEPRAZOLE [Concomitant]
     Active Substance: OMEPRAZOLE
     Indication: Breast cancer metastatic
     Dosage: 40 MG, DAILY
     Route: 048
     Dates: start: 20180801
  11. HYDROCHLOROTHIAZIDE\IRBESARTAN [Concomitant]
     Active Substance: HYDROCHLOROTHIAZIDE\IRBESARTAN
     Indication: Hypertension
     Dosage: 1 DF, DAILY
     Route: 048
     Dates: start: 20180801
  12. EZETIMIBE\SIMVASTATIN [Concomitant]
     Active Substance: EZETIMIBE\SIMVASTATIN
     Indication: Hypercholesterolaemia
     Dosage: 1 DF, DAILY
     Route: 048
     Dates: start: 20180801
  13. ALBUTEROL SULFATE [Concomitant]
     Active Substance: ALBUTEROL SULFATE
     Indication: Asthma
     Dosage: 2 PUFFS DAILY
     Route: 055
     Dates: start: 20180801
  14. GLUCOR [Concomitant]
     Active Substance: ACARBOSE
     Indication: Diabetes mellitus
     Dosage: 3 DF, DAILY
     Route: 048
     Dates: start: 20180801

REACTIONS (1)
  - Mesenteric artery thrombosis [Recovering/Resolving]

NARRATIVE: CASE EVENT DATE: 20221031
